FAERS Safety Report 7595182-7 (Version None)
Quarter: 2011Q2

REPORT INFORMATION
  Report Type: 
  Country: None (occurrence: None)
  Receive Date: 20110620
  Receipt Date: 20110502
  Transmission Date: 20111010
  Serious: Yes (Hospitalization)
  Sender: FDA-Public Use
  Company Number: UTC-006818

PATIENT
  Age: 62 Year
  Sex: Female
  Weight: 49 kg

DRUGS (4)
  1. TYVASO [Suspect]
     Indication: PULMONARY ARTERIAL HYPERTENSION
     Dosage: 3-9 BREATHS PER SESSION, INHALATION
     Route: 055
     Dates: start: 20101213
  2. COUMADIN [Concomitant]
  3. TRACLEER [Concomitant]
  4. ADCIRCA [Concomitant]

REACTIONS (1)
  - PNEUMONIA [None]
